FAERS Safety Report 7655629-4 (Version None)
Quarter: 2011Q3

REPORT INFORMATION
  Report Type: 
  Country: None (occurrence: None)
  Receive Date: 20110729
  Receipt Date: 20110722
  Transmission Date: 20111222
  Serious: Yes (Other)
  Sender: FDA-Public Use
  Company Number: 992458

PATIENT
  Sex: Female

DRUGS (2)
  1. NSAID'S [Suspect]
  2. METHOTREXATE [Suspect]
     Indication: RHEUMATOID ARTHRITIS
     Dosage: 10 MG/WEEK,

REACTIONS (3)
  - CONDITION AGGRAVATED [None]
  - TRAUMATIC LUNG INJURY [None]
  - RHEUMATOID NODULE [None]
